FAERS Safety Report 7222768-1 (Version None)
Quarter: 2011Q1

REPORT INFORMATION
  Report Type: 
  Country: None (occurrence: None)
  Receive Date: 20110106
  Receipt Date: 20110106
  Transmission Date: 20110831
  Serious: Yes (Hospitalization)
  Sender: FDA-Public Use
  Company Number: None

PATIENT
  Age: 86 Year
  Sex: Female
  Weight: 56.8 kg

DRUGS (12)
  1. FERROUS SULFATE TAB [Concomitant]
  2. EVISTA [Concomitant]
  3. ASPIRIN [Suspect]
     Indication: CORONARY ARTERY DISEASE
     Dosage: 81MG DAILY PO
     Route: 048
  4. HYDROCODONE BITARTRATE + ACETAMINOPHEN [Concomitant]
  5. CARVEDILOL [Concomitant]
  6. ENALAPRIL MALEATE [Concomitant]
  7. COUMADIN [Suspect]
     Indication: CORONARY ARTERY DISEASE
     Dosage: 3MG QPM PO
     Route: 048
  8. CALCIUM [Concomitant]
  9. SIMETHICONE [Concomitant]
  10. PROTONIX [Concomitant]
  11. DYAZIDE [Concomitant]
  12. DARVOCET-N 100 [Concomitant]

REACTIONS (8)
  - COAGULOPATHY [None]
  - HAEMORRHAGIC ANAEMIA [None]
  - COLON CANCER [None]
  - AMPUTATION [None]
  - GASTRIC DISORDER [None]
  - GASTROINTESTINAL HAEMORRHAGE [None]
  - INTERNATIONAL NORMALISED RATIO INCREASED [None]
  - RESPIRATORY DISTRESS [None]
